FAERS Safety Report 13144200 (Version 3)
Quarter: 2017Q1

REPORT INFORMATION
  Report Type: Spontaneous
  Country: JP (occurrence: JP)
  Receive Date: 20170124
  Receipt Date: 20170224
  Transmission Date: 20170428
  Serious: Yes (Other)
  Sender: FDA-Public Use
  Company Number: JP-009507513-1701JPN001490J

PATIENT

DRUGS (3)
  1. PEGINTERFERON ALFA-2B [Suspect]
     Active Substance: PEGINTERFERON ALFA-2B
     Dosage: UNK
     Route: 058
  2. REBETOL [Suspect]
     Active Substance: RIBAVIRIN
     Dosage: UNK
     Route: 048
  3. SOVRIAD [Suspect]
     Active Substance: SIMEPREVIR
     Dosage: 100 MG, UNK
     Route: 048

REACTIONS (1)
  - Adverse event [Unknown]
